FAERS Safety Report 9813520 (Version 1)
Quarter: 2014Q1

REPORT INFORMATION
  Report Type: Spontaneous
  Country: US (occurrence: None)
  Receive Date: 20140109
  Receipt Date: 20140109
  Transmission Date: 20141002
  Serious: Yes (Other)
  Sender: FDA-Public Use
  Company Number: 2013TP000711

PATIENT
  Age: 81 Year
  Sex: Female

DRUGS (12)
  1. LIDODERM (5 PCT) [Suspect]
     Indication: POST HERPETIC NEURALGIA
     Dosage: ;TOP
     Route: 061
  2. AMBIEN [Concomitant]
  3. ALPRAZOLAM [Concomitant]
  4. OMEPRAZOLE [Concomitant]
  5. TRIAMTERENE/HCTZ [Concomitant]
  6. KLOR-CON [Concomitant]
  7. LEVOTHYROXINE SODIUM [Concomitant]
  8. PREDNISONE [Concomitant]
  9. PANTOPRAZOLE SODIUM [Concomitant]
  10. LOSARTAN POTASSIUM [Concomitant]
  11. AMIODARINE HCL [Concomitant]
  12. DILTIAZEM HCL [Concomitant]

REACTIONS (2)
  - Atrial fibrillation [None]
  - Drug interaction [None]
